FAERS Safety Report 25616419 (Version 2)
Quarter: 2025Q3

REPORT INFORMATION
  Report Type: Spontaneous
  Country: US (occurrence: US)
  Receive Date: 20250729
  Receipt Date: 20250905
  Transmission Date: 20251020
  Serious: No
  Sender: MACLEODS
  Company Number: US-MACLEODS PHARMA-MAC2025054227

PATIENT

DRUGS (1)
  1. OLMESARTAN [Suspect]
     Active Substance: OLMESARTAN
     Indication: Blood pressure measurement
     Route: 065

REACTIONS (6)
  - Eye pruritus [Unknown]
  - Nausea [Unknown]
  - Dermatitis [Unknown]
  - Pruritus [Unknown]
  - Product odour abnormal [Unknown]
  - Suspected product contamination [Unknown]
